FAERS Safety Report 9892567 (Version 1)
Quarter: 2014Q1

REPORT INFORMATION
  Report Type: Spontaneous
  Country: RS (occurrence: RS)
  Receive Date: 20140212
  Receipt Date: 20140212
  Transmission Date: 20141002
  Serious: Yes (Hospitalization)
  Sender: FDA-Public Use
  Company Number: PHHY2014RS014040

PATIENT
  Age: 17 Year
  Sex: Male
  Weight: 76 kg

DRUGS (1)
  1. OSPAMOX [Suspect]
     Indication: PHARYNGITIS
     Dosage: 1000 MG, ONCE/SINGLE
     Route: 048
     Dates: start: 20140122, end: 20140122

REACTIONS (5)
  - Suffocation feeling [Recovered/Resolved]
  - Enanthema [Recovered/Resolved]
  - Pruritus [Recovered/Resolved]
  - Rash [Recovered/Resolved]
  - Tongue oedema [Recovered/Resolved]
